FAERS Safety Report 8391896-X (Version None)
Quarter: 2012Q2

REPORT INFORMATION
  Report Type: 
  Country: None (occurrence: None)
  Receive Date: 20120525
  Receipt Date: 20120525
  Transmission Date: 20120825
  Serious: Yes (Other)
  Sender: FDA-Public Use
  Company Number: None

PATIENT
  Age: 76 Year
  Sex: Female
  Weight: 61.2356 kg

DRUGS (1)
  1. OMEPRAZOLE [Suspect]
     Indication: GASTRIC DISORDER
     Dosage: 1-2 X DAY

REACTIONS (2)
  - HEART RATE INCREASED [None]
  - VEIN DISORDER [None]
